FAERS Safety Report 8592452-0 (Version None)
Quarter: 2012Q3

REPORT INFORMATION
  Report Type: 
  Country: None (occurrence: None)
  Receive Date: 20120814
  Receipt Date: 20120807
  Transmission Date: 20120928
  Serious: Yes (Other)
  Sender: FDA-Public Use
  Company Number: JP-009507513-2012SP024688

PATIENT

DRUGS (16)
  1. TELAVIC [Suspect]
     Indication: HEPATITIS C
     Dosage: 2250 MG, QD
     Route: 048
     Dates: start: 20120418, end: 20120420
  2. BISOPROLOL FUMARATE [Concomitant]
     Dosage: UNK UNK, UNKNOWN
     Route: 048
     Dates: start: 20120422
  3. HYDROCHLOROTHIAZIDE (+) LOSARTAN POTASSIUM [Concomitant]
     Dosage: UNK
     Route: 048
     Dates: start: 20120422
  4. PEGINTERFERON ALFA-2B [Suspect]
     Indication: HEPATITIS C
     Dosage: 1.5 ?G/KG, QW
     Route: 058
     Dates: start: 20120418, end: 20120418
  5. BISOPROLOL FUMARATE [Concomitant]
     Indication: HYPERTENSION
     Dosage: 5 MG, QD
     Route: 048
     Dates: end: 20120420
  6. LASIX [Concomitant]
     Indication: CARDIAC FAILURE
     Dosage: 40 MG, QD
     Route: 048
     Dates: end: 20120420
  7. LASIX [Concomitant]
     Dosage: UNK UNK, UNKNOWN
     Route: 048
     Dates: start: 20120422
  8. DIGOXIN [Concomitant]
     Dosage: UNK UNK, UNKNOWN
     Route: 048
     Dates: start: 20120422
  9. REBETOL [Suspect]
     Indication: HEPATITIS C
     Dosage: 800 MG, QD
     Route: 048
     Dates: start: 20120418, end: 20120420
  10. HYDROCHLOROTHIAZIDE (+) LOSARTAN POTASSIUM [Concomitant]
     Dosage: 12.5 MG, QD
     Route: 048
     Dates: end: 20120420
  11. WARFARIN SODIUM [Concomitant]
     Dosage: UNK UNK, UNKNOWN
     Route: 048
     Dates: start: 20120422
  12. DIGOXIN [Concomitant]
     Indication: CARDIAC FAILURE
     Dosage: 0.125 MG, QD
     Route: 048
     Dates: end: 20120420
  13. CONIEL [Concomitant]
     Indication: HYPERTENSION
     Dosage: 40 MG, QD
     Route: 048
     Dates: end: 20120420
  14. HYDROCHLOROTHIAZIDE (+) LOSARTAN POTASSIUM [Concomitant]
     Indication: HYPERTENSION
     Dosage: 50 MG, QD
     Route: 048
     Dates: end: 20120420
  15. WARFARIN SODIUM [Concomitant]
     Indication: ATRIAL FIBRILLATION
     Dosage: 4.5 MG, QD
     Dates: end: 20120420
  16. CONIEL [Concomitant]
     Dosage: UNK UNK, UNKNOWN
     Route: 048
     Dates: start: 20120422

REACTIONS (5)
  - HEART RATE DECREASED [None]
  - PYREXIA [None]
  - RENAL FAILURE ACUTE [None]
  - HAEMOGLOBIN DECREASED [None]
  - BLOOD PRESSURE DECREASED [None]
